FAERS Safety Report 5696783-3 (Version None)
Quarter: 2008Q2

REPORT INFORMATION
  Report Type: 
  Country: None (occurrence: None)
  Receive Date: 20080407
  Receipt Date: 20080119
  Transmission Date: 20081010
  Serious: Yes (Other)
  Sender: FDA-Public Use
  Company Number: APP200800045

PATIENT
  Age: 97 Year
  Sex: Male
  Weight: 68 kg

DRUGS (13)
  1. HEPARIN SODIUM INJECTION [Suspect]
     Indication: DIALYSIS
     Dosage: 2000 USP UNITS, 2000-5000 UNITS DILUTED IN SALINE 5 ML, INTRAVENOUS BOLUS
     Route: 040
     Dates: start: 20080119, end: 20080119
  2. HEPARIN SODIUM INJECTION [Suspect]
  3. NORVASC [Concomitant]
  4. PHOSLO [Concomitant]
  5. NEPHRO CAPS (SOLIVITO N ) [Concomitant]
  6. ASPIRIN [Concomitant]
  7. COREG [Concomitant]
  8. ENALAPRIL MALEATE [Concomitant]
  9. TEMAZEPAM [Concomitant]
  10. VITAMIN B-12 [Concomitant]
  11. ARANESP [Concomitant]
  12. ZEMPLAR [Concomitant]
  13. ACETAMINOPHEN [Concomitant]

REACTIONS (4)
  - ANAPHYLACTIC REACTION [None]
  - HYPERHIDROSIS [None]
  - HYPOTENSION [None]
  - NAUSEA [None]
